FAERS Safety Report 4916552-9 (Version None)
Quarter: 2006Q1

REPORT INFORMATION
  Report Type: 
  Country: None (occurrence: None)
  Receive Date: 20060216
  Receipt Date: 20060216
  Transmission Date: 20060701
  Serious: Yes (Life-Threatening, Hospitalization)
  Sender: FDA-Public Use
  Company Number: None

PATIENT
  Age: 59 Year
  Sex: Female

DRUGS (12)
  1. BREATHE RIGHT NASAL SPRAY OR SNORE SPRAY [Suspect]
     Indication: SNORING
     Dosage: FIRST DOSE
  2. LASIX [Concomitant]
  3. CALCIUM + D [Concomitant]
  4. ACIPHEX [Concomitant]
  5. LIPITOR [Concomitant]
  6. LEXAPRO [Concomitant]
  7. HYDROCHLOROTHIAZIDE [Concomitant]
  8. LISINOPRIL [Concomitant]
  9. ESTRATEST [Concomitant]
  10. ACCALATE [Concomitant]
  11. COMBIVENT [Concomitant]
  12. NEBULIZERS [Concomitant]

REACTIONS (2)
  - ANAPHYLACTIC REACTION [None]
  - ASTHMA [None]
